FAERS Safety Report 20885127 (Version 2)
Quarter: 2022Q2

REPORT INFORMATION
  Report Type: Spontaneous
  Country: AT (occurrence: AT)
  Receive Date: 20220527
  Receipt Date: 20220608
  Transmission Date: 20220721
  Serious: Yes (Other)
  Sender: FDA-Public Use
  Company Number: AT-MLMSERVICE-20220517-3566011-1

PATIENT
  Age: 20 Year
  Sex: Female

DRUGS (8)
  1. METHOTREXATE SODIUM [Suspect]
     Active Substance: METHOTREXATE SODIUM
     Indication: Osteosarcoma
     Dosage: 12 G/M2 HIGH DOSE  (WEEKS 4, 5, 9 AND 10)
     Dates: start: 2013
  2. CISPLATIN [Concomitant]
     Active Substance: CISPLATIN
     Indication: Osteosarcoma
     Dosage: 120MG/M2 CISPLATIN (P)
     Dates: start: 2013
  3. DOXORUBICIN [Concomitant]
     Active Substance: DOXORUBICIN
     Indication: Osteosarcoma
     Dosage: 75MG/M2 DOXORUBICIN (A) (WEEKS 1 AND 6)
     Dates: start: 2013
  4. IFOSFAMIDE [Concomitant]
     Active Substance: IFOSFAMIDE
     Indication: Osteosarcoma
     Dosage: 2800 MG/M2, CYCLIC
     Dates: start: 2013
  5. IFOSFAMIDE [Concomitant]
     Active Substance: IFOSFAMIDE
     Dosage: 50% DOSE REDUCTION
  6. IFOSFAMIDE [Concomitant]
     Active Substance: IFOSFAMIDE
     Dosage: 3G/M2 CYCLIC
     Dates: start: 2013
  7. ETOPOSIDE [Concomitant]
     Active Substance: ETOPOSIDE
     Indication: Osteosarcoma
     Dosage: 50% DOSE REDUCTION
  8. ETOPOSIDE [Concomitant]
     Active Substance: ETOPOSIDE
     Dosage: 100 MG/M2, CYCLIC
     Dates: start: 2013

REACTIONS (2)
  - Hepatic enzyme increased [Unknown]
  - Drug clearance decreased [Unknown]

NARRATIVE: CASE EVENT DATE: 20140101
